FAERS Safety Report 24155472 (Version 1)
Quarter: 2024Q3

REPORT INFORMATION
  Report Type: Spontaneous
  Country: CA (occurrence: CA)
  Receive Date: 20240731
  Receipt Date: 20240731
  Transmission Date: 20241017
  Serious: Yes (Hospitalization)
  Sender: AMGEN
  Company Number: CA-AMGEN-CANSP2024149142

PATIENT
  Age: 44 Year
  Sex: Female

DRUGS (1)
  1. REPATHA [Suspect]
     Active Substance: EVOLOCUMAB
     Indication: Hypercholesterolaemia
     Dosage: 140 MILLIGRAM, 1 EVERY Q2WK
     Route: 058

REACTIONS (4)
  - Pneumonia [Recovering/Resolving]
  - Colitis [Recovering/Resolving]
  - Hypotension [Recovering/Resolving]
  - Intentional dose omission [Recovering/Resolving]
